FAERS Safety Report 23741801 (Version 1)
Quarter: 2024Q2

REPORT INFORMATION
  Report Type: Spontaneous
  Country: US (occurrence: US)
  Receive Date: 20240415
  Receipt Date: 20240415
  Transmission Date: 20240716
  Serious: No
  Sender: FDA-Public Use
  Company Number: US-TEVA-VS-3183411

PATIENT
  Sex: Female

DRUGS (2)
  1. AUSTEDO [Suspect]
     Active Substance: DEUTETRABENAZINE
     Indication: Dyskinesia
     Route: 065
  2. AUSTEDO [Suspect]
     Active Substance: DEUTETRABENAZINE
     Indication: Dyskinesia
     Route: 065

REACTIONS (1)
  - Drug ineffective [Unknown]
